FAERS Safety Report 6700116-0 (Version None)
Quarter: 2010Q2

REPORT INFORMATION
  Report Type: 
  Country: None (occurrence: None)
  Receive Date: 20100427
  Receipt Date: 20100427
  Transmission Date: 20101027
  Serious: No
  Sender: FDA-Public Use
  Company Number: None

PATIENT
  Age: 51 Year
  Sex: Male
  Weight: 111.1313 kg

DRUGS (1)
  1. GABAPENTIN 300MG ACTAVIS ELIZABETH LLC [Suspect]
     Indication: NEURALGIA
     Dosage: 3 EVERY NIGHT BEDTIM PO, ABOUT 1 YEAR
     Route: 048

REACTIONS (2)
  - COUGH [None]
  - DYSPNOEA [None]
